FAERS Safety Report 8369269-5 (Version None)
Quarter: 2012Q2

REPORT INFORMATION
  Report Type: 
  Country: None (occurrence: None)
  Receive Date: 20120518
  Receipt Date: 20120514
  Transmission Date: 20120825
  Serious: Yes (Other)
  Sender: FDA-Public Use
  Company Number: PHHY2011DE46337

PATIENT
  Age: 77 Year
  Sex: Male

DRUGS (14)
  1. ZOMETA [Suspect]
     Indication: PROSTATE CANCER METASTATIC
     Dosage: 4 MG/ 5 ML, EVERY 4 WEEKS
     Route: 042
     Dates: start: 20100101, end: 20110801
  2. ALLOPURINOL ^1A FARMA^ [Concomitant]
     Dosage: 300 MG, UNK
     Route: 048
  3. MULTAQ [Concomitant]
     Dates: start: 20101201, end: 20110701
  4. MOLSIDOMINE [Concomitant]
     Dosage: 8 MG, UNK
     Route: 048
  5. LERCANIDIPINE [Concomitant]
     Dosage: 5 MG, UNK
     Route: 048
  6. NEPHROTRANS [Concomitant]
  7. CARVEDILOL [Concomitant]
     Dosage: 37.5 MG, UNK
     Route: 048
  8. PHENPRO [Concomitant]
     Dosage: 1.5-3 MG, DAILLY
     Route: 048
  9. ENALAPRIL ^1A FARMA^ [Concomitant]
     Dosage: 5 MG, UNK
     Route: 048
  10. L-THYROXIN ^HENNING GEORGE^ [Concomitant]
     Dosage: 25 UG, UNK
     Route: 048
  11. GLIMEPIRIDE [Concomitant]
     Dosage: 2 MG, UNK
     Route: 048
  12. SIMVASTATIN [Concomitant]
     Dosage: 40 MG, UNK
     Route: 048
  13. ENALAPRIL/HCT [Concomitant]
     Dosage: 1 DF, (5/12.5MG DAILY, AT NOON 5/12.5MG ADDITIONALLY AS NEEDED)
     Route: 048
  14. XIPAMIDE [Concomitant]
     Dosage: 10 MG, UNK
     Route: 048

REACTIONS (7)
  - RENAL FAILURE [None]
  - BLOOD CREATININE INCREASED [None]
  - LYMPHOCYTE COUNT DECREASED [None]
  - HAEMOGLOBIN DECREASED [None]
  - MONOCYTE COUNT INCREASED [None]
  - ATRIAL FIBRILLATION [None]
  - BLOOD CHROMOGRANIN A INCREASED [None]
